FAERS Safety Report 5340885-8 (Version None)
Quarter: 2007Q2

REPORT INFORMATION
  Report Type: 
  Country: None (occurrence: None)
  Receive Date: 20070531
  Receipt Date: 20070521
  Transmission Date: 20071010
  Serious: Yes (Hospitalization)
  Sender: FDA-Public Use
  Company Number: BR-ABBOTT-07P-020-0368809-00

PATIENT
  Age: 61 Year
  Sex: Female
  Weight: 54 kg

DRUGS (2)
  1. HUMIRA [Suspect]
     Indication: RHEUMATOID ARTHRITIS
     Route: 058
     Dates: start: 20050428, end: 20070418
  2. PREDNISOLONE [Concomitant]
     Indication: RHEUMATOID ARTHRITIS
     Dosage: 1 TABLET
     Route: 048
     Dates: end: 20070421

REACTIONS (4)
  - ARTHROPATHY [None]
  - BONE EROSION [None]
  - OEDEMA PERIPHERAL [None]
  - WEIGHT DECREASED [None]
